FAERS Safety Report 9234745 (Version 2)
Quarter: 2013Q2

REPORT INFORMATION
  Report Type: Spontaneous
  Country: US (occurrence: US)
  Receive Date: 20130416
  Receipt Date: 20130529
  Transmission Date: 20140414
  Serious: Yes (Other)
  Sender: FDA-Public Use
  Company Number: US-TEVA-397709USA

PATIENT
  Sex: Female

DRUGS (1)
  1. PRAVASTATIN [Suspect]

REACTIONS (4)
  - Intestinal polyp [Recovering/Resolving]
  - Diverticulum [Unknown]
  - Haemorrhoids [Unknown]
  - Gastrointestinal disorder [Unknown]
